FAERS Safety Report 16279215 (Version 2)
Quarter: 2019Q2

REPORT INFORMATION
  Report Type: Report from Study
  Country: US (occurrence: US)
  Receive Date: 20190506
  Receipt Date: 20190530
  Transmission Date: 20190711
  Serious: Yes (Life-Threatening, Other)
  Sender: FDA-Public Use
  Company Number: US-PFIZER INC-2019149078

PATIENT
  Age: 67 Year
  Sex: Female

DRUGS (1)
  1. IBRANCE [Suspect]
     Active Substance: PALBOCICLIB
     Indication: BREAST CANCER FEMALE
     Dosage: 125 MG, CYCLIC ( 21 DAYS OF 28 DAY CYCLE)
     Route: 048
     Dates: start: 20190327, end: 20190404

REACTIONS (10)
  - Anaemia [Unknown]
  - Nausea [Unknown]
  - Neoplasm progression [Unknown]
  - Haematuria [Unknown]
  - Alopecia [Unknown]
  - Leukopenia [Unknown]
  - Urinary tract infection [Unknown]
  - Fatigue [Unknown]
  - Gastrointestinal haemorrhage [Unknown]
  - Respiratory tract infection [Unknown]

NARRATIVE: CASE EVENT DATE: 2019
